FAERS Safety Report 9147869 (Version 1)
Quarter: 2013Q1

REPORT INFORMATION
  Report Type: Spontaneous
  Country: LB (occurrence: LB)
  Receive Date: 20130307
  Receipt Date: 20130307
  Transmission Date: 20140127
  Serious: Yes (Other)
  Sender: FDA-Public Use
  Company Number: CHPA2013LB004096

PATIENT
  Age: 40 Year
  Sex: Male

DRUGS (1)
  1. THERAFLU FLU + SORE THROAT [Suspect]
     Dosage: 1 DF, QD
     Route: 048

REACTIONS (1)
  - Hypertension [Unknown]
